FAERS Safety Report 7793261-2 (Version None)
Quarter: 2011Q3

REPORT INFORMATION
  Report Type: 
  Country: None (occurrence: None)
  Receive Date: 20110930
  Receipt Date: 20110930
  Transmission Date: 20111222
  Serious: Yes (Life-Threatening, Disabling)
  Sender: FDA-Public Use
  Company Number: None

PATIENT
  Sex: Female
  Weight: 58.514 kg

DRUGS (2)
  1. CELEXA [Suspect]
     Indication: DEPRESSION
     Dosage: 40 MG 1 X DAY
     Dates: start: 20040901
  2. CELEXA [Suspect]
     Indication: DEPRESSION
     Dosage: 40 MG 1 X DAY
     Dates: start: 20020901

REACTIONS (1)
  - ATRIOVENTRICULAR BLOCK COMPLETE [None]
